FAERS Safety Report 7620694-7 (Version None)
Quarter: 2011Q3

REPORT INFORMATION
  Report Type: 
  Country: None (occurrence: None)
  Receive Date: 20110719
  Receipt Date: 20110712
  Transmission Date: 20111222
  Serious: Yes (Hospitalization, Disabling, Other)
  Sender: FDA-Public Use
  Company Number: US-GLAXOSMITHKLINE-A0927618A

PATIENT
  Age: 79 Year
  Sex: Female

DRUGS (16)
  1. CARDIZEM [Concomitant]
  2. UNKNOWN [Concomitant]
  3. LOVASTATIN [Concomitant]
  4. ALBUTEROL [Concomitant]
  5. PROAIR HFA [Concomitant]
  6. COUMADIN [Concomitant]
  7. UNKNOWN [Concomitant]
  8. VENTOLIN HFA [Concomitant]
  9. CORTICOSTEROIDS [Concomitant]
     Indication: IDIOPATHIC THROMBOCYTOPENIC PURPURA
     Dates: start: 20100601
  10. PROMACTA [Suspect]
     Indication: IDIOPATHIC THROMBOCYTOPENIC PURPURA
     Dosage: 25MG PER DAY
     Route: 048
     Dates: start: 20110329
  11. HYDROCHLOROTHIAZIDE [Concomitant]
  12. LISINOPRIL [Concomitant]
  13. DIGOXIN [Concomitant]
  14. ADVAIR DISKUS 100/50 [Concomitant]
  15. METOPROLOL TARTRATE [Concomitant]
  16. TRAMADOL HCL [Concomitant]

REACTIONS (18)
  - NAUSEA [None]
  - ABNORMAL FAECES [None]
  - PNEUMONIA [None]
  - PULMONARY THROMBOSIS [None]
  - WEIGHT DECREASED [None]
  - HEPATIC CYST [None]
  - EYE PAIN [None]
  - HYPOTENSION [None]
  - DYSPNOEA [None]
  - LUNG DISORDER [None]
  - CHEST PAIN [None]
  - PROTHROMBIN TIME PROLONGED [None]
  - RENAL CYST [None]
  - OCULAR HYPERAEMIA [None]
  - PULMONARY EMBOLISM [None]
  - LEG AMPUTATION [None]
  - ARTERIAL THROMBOSIS [None]
  - JOINT SWELLING [None]
